FAERS Safety Report 25484401 (Version 1)
Quarter: 2025Q2

REPORT INFORMATION
  Report Type: Spontaneous
  Country: GB (occurrence: GB)
  Receive Date: 20250626
  Receipt Date: 20250626
  Transmission Date: 20250716
  Serious: Yes (Other)
  Sender: PFIZER
  Company Number: GB-PFIZER INC-202500127788

PATIENT

DRUGS (1)
  1. LORLATINIB [Suspect]
     Active Substance: LORLATINIB
     Indication: Brain neoplasm

REACTIONS (4)
  - Second primary malignancy [Unknown]
  - Oesophageal carcinoma [Unknown]
  - Off label use [Unknown]
  - Wrong technique in product usage process [Unknown]
